FAERS Safety Report 19646825 (Version 1)
Quarter: 2021Q3

REPORT INFORMATION
  Report Type: Spontaneous
  Country: DE (occurrence: DE)
  Receive Date: 20210802
  Receipt Date: 20210802
  Transmission Date: 20211014
  Serious: Yes (Life-Threatening, Other)
  Sender: FDA-Public Use
  Company Number: DE-TEVA-2021-DE-1937064

PATIENT
  Age: 55 Year
  Sex: Female

DRUGS (1)
  1. NALOXON [Suspect]
     Active Substance: NALOXONE HYDROCHLORIDE
     Indication: DISTURBANCE IN ATTENTION
     Dosage: 4MG
     Route: 042
     Dates: start: 20210717, end: 20210717

REACTIONS (2)
  - Bradycardia [Recovering/Resolving]
  - Cardiac arrest [Recovering/Resolving]

NARRATIVE: CASE EVENT DATE: 20210717
